FAERS Safety Report 7414137-6 (Version None)
Quarter: 2011Q2

REPORT INFORMATION
  Report Type: 
  Country: None (occurrence: None)
  Receive Date: 20110414
  Receipt Date: 20110412
  Transmission Date: 20111010
  Serious: Yes (Other)
  Sender: FDA-Public Use
  Company Number: VE-PFIZER INC-2011080536

PATIENT
  Age: 86 Year
  Sex: Female

DRUGS (4)
  1. CATAPRESAN [Concomitant]
     Indication: HYPERTENSION
     Dosage: 0.150 MG, 2X/DAY
     Route: 048
     Dates: start: 20101001
  2. LIPITOR [Suspect]
     Indication: HYPERCHOLESTEROLAEMIA
     Dosage: 80 MG, 1X/DAY
     Route: 048
  3. CARVEDIL [Concomitant]
     Indication: HYPERTENSION
     Dosage: 12.5 MG, 1X/DAY
     Route: 048
     Dates: start: 20101001
  4. MODURETIC 5-50 [Concomitant]
     Indication: HYPERTENSION
     Dosage: 50 MG, 1X/DAY
     Route: 048
     Dates: start: 20101001

REACTIONS (1)
  - CEREBROVASCULAR ACCIDENT [None]
